FAERS Safety Report 12421953 (Version 1)
Quarter: 2016Q2

REPORT INFORMATION
  Report Type: Spontaneous
  Country: MX (occurrence: MX)
  Receive Date: 20160531
  Receipt Date: 20160531
  Transmission Date: 20160815
  Serious: Yes (Other)
  Sender: FDA-Public Use
  Company Number: PHHY2015MX175676

PATIENT

DRUGS (1)
  1. ZOFRAN [Suspect]
     Active Substance: ONDANSETRON HYDROCHLORIDE
     Indication: PRODUCT USED FOR UNKNOWN INDICATION
     Dosage: 08 MG
     Route: 065

REACTIONS (3)
  - Counterfeit drug administered [Unknown]
  - Suspected transmission of an infectious agent via product [Unknown]
  - Burkholderia cepacia complex infection [Unknown]
